FAERS Safety Report 8780367 (Version 1)
Quarter: 2012Q4

REPORT INFORMATION
  Report Type: Spontaneous
  Country: US (occurrence: None)
  Receive Date: 20120905
  Receipt Date: 20120905
  Transmission Date: 20130627
  Serious: Yes (Other)
  Sender: FDA-Public Use
  Company Number: None

PATIENT
  Age: 78 Year
  Sex: Male
  Weight: 99.79 kg

DRUGS (1)
  1. PRAVASTATIN SODIUM [Suspect]
     Dates: start: 20120801, end: 20120803

REACTIONS (4)
  - Musculoskeletal stiffness [None]
  - Back pain [None]
  - Dysphagia [None]
  - Cough [None]
